FAERS Safety Report 15254887 (Version 3)
Quarter: 2018Q3

REPORT INFORMATION
  Report Type: Spontaneous
  Country: US (occurrence: US)
  Receive Date: 20180808
  Receipt Date: 20180906
  Transmission Date: 20181010
  Serious: Yes (Hospitalization)
  Sender: FDA-Public Use
  Company Number: US-ORPHAN EUROPE-2053432

PATIENT
  Age: 18 Year
  Sex: Male

DRUGS (9)
  1. CYSTADANE [Suspect]
     Active Substance: BETAINE
     Indication: METHYLMALONIC ACIDURIA
     Route: 048
     Dates: start: 2012
  2. LISINOPRIL. [Concomitant]
     Active Substance: LISINOPRIL
  3. ASPIRIN. [Concomitant]
     Active Substance: ASPIRIN
  4. LEVOCARNITINE. [Concomitant]
     Active Substance: LEVOCARNITINE
  5. CYSTADANE [Suspect]
     Active Substance: BETAINE
     Route: 048
  6. BACLOFEN. [Concomitant]
     Active Substance: BACLOFEN
  7. KEPPRA [Concomitant]
     Active Substance: LEVETIRACETAM
  8. CYANOCOBALAMIN. [Concomitant]
     Active Substance: CYANOCOBALAMIN
  9. FOLIC ACID. [Concomitant]
     Active Substance: FOLIC ACID

REACTIONS (3)
  - Gastrostomy [Recovering/Resolving]
  - Agitation [Unknown]
  - Extra dose administered [Unknown]
